FAERS Safety Report 9691575 (Version 3)
Quarter: 2014Q1

REPORT INFORMATION
  Report Type: Spontaneous
  Country: DE (occurrence: DE)
  Receive Date: 20131115
  Receipt Date: 20140123
  Transmission Date: 20141002
  Serious: Yes (Hospitalization)
  Sender: FDA-Public Use
  Company Number: DE-PFIZER INC-2013323318

PATIENT
  Age: 48 Year
  Sex: Female
  Weight: 80 kg

DRUGS (1)
  1. DEPO-CLINOVIR [Suspect]
     Indication: DYSMENORRHOEA
     Dosage: EVERY 12 WEEKS
     Route: 030
     Dates: start: 2001, end: 20130718

REACTIONS (12)
  - Dizziness [Recovering/Resolving]
  - Syncope [Recovering/Resolving]
  - Nausea [Recovering/Resolving]
  - Malaise [Unknown]
  - Crying [Unknown]
  - Retching [Recovering/Resolving]
  - Chills [Recovering/Resolving]
  - Diarrhoea [Recovering/Resolving]
  - Asthenia [Recovering/Resolving]
  - Vision blurred [Recovering/Resolving]
  - Decreased appetite [Unknown]
  - Hyperhidrosis [Unknown]
